FAERS Safety Report 7526065-6 (Version None)
Quarter: 2011Q2

REPORT INFORMATION
  Report Type: 
  Country: None (occurrence: None)
  Receive Date: 20110526
  Receipt Date: 20110512
  Transmission Date: 20111010
  Serious: Yes (Hospitalization)
  Sender: FDA-Public Use
  Company Number: JP-DEXPHARM-20110512

PATIENT
  Age: 69 Year
  Sex: Female

DRUGS (6)
  1. BENIDIPINE [Concomitant]
  2. EICOPSAPENTAENOIC ACID [Concomitant]
  3. GLIMEPIRIDE [Concomitant]
  4. TELMISARTAN [Concomitant]
  5. EZETIMIBE [Concomitant]
  6. OMEPRAZOLE [Suspect]
     Indication: GASTRITIS
     Dosage: 20 MG MILLIGRAM(S), SEP. DOSAGES/INTERVAL: 1 IN 1 D

REACTIONS (6)
  - HYPERTENSION [None]
  - HYPOCALCAEMIA [None]
  - MALAISE [None]
  - HYPOKALAEMIA [None]
  - HYPOPARATHYROIDISM [None]
  - DECREASED APPETITE [None]
